FAERS Safety Report 23636108 (Version 1)
Quarter: 2024Q1

REPORT INFORMATION
  Report Type: Report from Study
  Country: US (occurrence: US)
  Receive Date: 20240315
  Receipt Date: 20240315
  Transmission Date: 20240410
  Serious: Yes (Hospitalization, Other)
  Sender: FDA-Public Use
  Company Number: US-ABBVIE-5678489

PATIENT
  Age: 67 Year
  Sex: Male

DRUGS (4)
  1. SKYRIZI [Suspect]
     Active Substance: RISANKIZUMAB-RZAA
     Indication: Crohn^s disease
     Dosage: WEEK 12 AND EVERY 8 WEEKS THEREAFTER, STRENGTH FORM: 360 MG
     Route: 058
     Dates: start: 20230912
  2. SKYRIZI [Suspect]
     Active Substance: RISANKIZUMAB-RZAA
     Indication: Crohn^s disease
     Dosage: WEEK 0, STRENGTH FORM: 360 MG
     Route: 042
     Dates: start: 20230620, end: 20230620
  3. SKYRIZI [Suspect]
     Active Substance: RISANKIZUMAB-RZAA
     Indication: Crohn^s disease
     Dosage: WEEK 4, STRENGTH FORM: 360 MG
     Route: 042
     Dates: start: 20230718, end: 20230718
  4. SKYRIZI [Suspect]
     Active Substance: RISANKIZUMAB-RZAA
     Indication: Crohn^s disease
     Dosage: WEEK 8, STRENGTH FORM: 360 MG
     Route: 042
     Dates: start: 20230815, end: 20230815

REACTIONS (3)
  - Rectal cancer [Unknown]
  - Insomnia [Unknown]
  - Drug ineffective [Unknown]

NARRATIVE: CASE EVENT DATE: 20231201
